FAERS Safety Report 8210862-8 (Version None)
Quarter: 2012Q1

REPORT INFORMATION
  Report Type: 
  Country: None (occurrence: None)
  Receive Date: 20120315
  Receipt Date: 20120305
  Transmission Date: 20120608
  Serious: Yes (Other)
  Sender: FDA-Public Use
  Company Number: US-ACCORD-012644

PATIENT
  Age: 66 Year
  Sex: Female

DRUGS (3)
  1. CISPLATIN [Suspect]
     Indication: ADENOCARCINOMA
  2. ETOPOSIDE [Suspect]
     Indication: ADENOCARCINOMA
  3. ZOMETA [Suspect]

REACTIONS (1)
  - CEREBROVASCULAR ACCIDENT [None]
